FAERS Safety Report 22234693 (Version 1)
Quarter: 2023Q2

REPORT INFORMATION
  Report Type: Spontaneous
  Country: CA (occurrence: CA)
  Receive Date: 20230420
  Receipt Date: 20230420
  Transmission Date: 20230722
  Serious: Yes (Other)
  Sender: FDA-Public Use
  Company Number: CA-PFIZER INC-PV202300050950

PATIENT
  Age: 50 Year
  Sex: Female
  Weight: 79.8 kg

DRUGS (5)
  1. TORISEL [Suspect]
     Active Substance: TEMSIROLIMUS
     Indication: Cervix carcinoma
     Dosage: 25 MG, CYCLIC (3 WEEKS ON/1 WEEK OFF: 1 CYCLE = 28DAYS)
     Route: 042
  2. TORISEL [Suspect]
     Active Substance: TEMSIROLIMUS
     Dosage: 25 MG
     Route: 042
     Dates: start: 20230323
  3. TORISEL [Suspect]
     Active Substance: TEMSIROLIMUS
     Dosage: 25 MG
     Route: 042
     Dates: start: 2023
  4. FAMOTIDINE [Concomitant]
     Active Substance: FAMOTIDINE
     Indication: Premedication
     Dosage: 20 MG , FOR 1 DOSE ADMINISTERED 30 MIN PRIOR TO INFUSION
     Route: 042
  5. HEPARIN [Concomitant]
     Active Substance: HEPARIN SODIUM
     Dosage: 100UNITS/ML 2.5ML

REACTIONS (5)
  - Dyspnoea [Unknown]
  - Hepatotoxicity [Unknown]
  - Off label use [Unknown]
  - Blood pressure decreased [Unknown]
  - Blood pressure increased [Unknown]

NARRATIVE: CASE EVENT DATE: 20230101
